FAERS Safety Report 8772046 (Version 10)
Quarter: 2013Q2

REPORT INFORMATION
  Report Type: Report from Study
  Country: ES (occurrence: ES)
  Receive Date: 20120906
  Receipt Date: 20130430
  Transmission Date: 20140414
  Serious: Yes (Hospitalization)
  Sender: FDA-Public Use
  Company Number: ES-ROCHE-1069467

PATIENT
  Age: 49 Year
  Sex: Male
  Weight: 61 kg

DRUGS (18)
  1. PEG-INTERFERON ALFA 2A [Suspect]
     Indication: CHRONIC HEPATITIS C
     Dosage: FORM: LOI
     Route: 058
     Dates: start: 20120323, end: 20120605
  2. PEG-INTERFERON ALFA 2A [Suspect]
     Indication: HIV INFECTION
  3. RIBAVIRIN [Suspect]
     Indication: CHRONIC HEPATITIS C
     Route: 048
     Dates: start: 20120323, end: 20120605
  4. RIBAVIRIN [Suspect]
     Indication: HIV INFECTION
  5. BI 201335 [Suspect]
     Indication: CHRONIC HEPATITIS C
     Dosage: FORM: KAW
     Route: 048
     Dates: start: 20120323, end: 20120509
  6. BI 201335 [Suspect]
     Indication: HIV INFECTION
  7. KALETRA [Suspect]
     Indication: HIV INFECTION
     Dosage: 400/100
     Route: 048
     Dates: start: 20120709, end: 20120720
  8. ACTRAPID HUMAN [Concomitant]
     Indication: HYPERGLYCAEMIA
     Route: 065
     Dates: start: 20120524
  9. ISENTRESS [Concomitant]
     Indication: HIV INFECTION
     Route: 048
     Dates: start: 20120118
  10. TRUVADA [Concomitant]
     Indication: HIV INFECTION
     Dosage: DOSE: 1 ANZ
     Route: 048
     Dates: start: 20120204, end: 20120611
  11. NOCTAMID [Concomitant]
     Indication: INSOMNIA
     Route: 048
     Dates: start: 20120516, end: 20120601
  12. NOCTAMID [Concomitant]
     Route: 048
     Dates: start: 20120606, end: 20120618
  13. STILNOX [Concomitant]
     Indication: INSOMNIA
     Route: 048
     Dates: start: 20120619
  14. MAXIPIME [Concomitant]
     Indication: INFECTION PROPHYLAXIS
     Route: 042
     Dates: start: 20120606, end: 20120612
  15. ZYVOXID [Concomitant]
     Route: 048
     Dates: start: 20120614
  16. SEPTRIN FORTE [Concomitant]
     Indication: URINARY TRACT INFECTION
     Route: 048
     Dates: start: 20120802, end: 20120829
  17. NORVIR [Concomitant]
     Indication: HIV INFECTION
     Route: 048
     Dates: start: 20120720
  18. PREZISTA [Concomitant]
     Indication: HIV INFECTION
     Route: 048
     Dates: start: 20120720

REACTIONS (18)
  - Toxic skin eruption [Recovered/Resolved]
  - Drug reaction with eosinophilia and systemic symptoms [Recovered/Resolved with Sequelae]
  - Depression [Recovered/Resolved]
  - Otosalpingitis [Not Recovered/Not Resolved]
  - Hyperglycaemia [Not Recovered/Not Resolved]
  - Insomnia [Not Recovered/Not Resolved]
  - Staphylococcal bacteraemia [Recovered/Resolved]
  - Abnormal loss of weight [Recovered/Resolved]
  - Diarrhoea [Recovered/Resolved]
  - Urinary tract infection [Recovered/Resolved]
  - Oral candidiasis [Recovered/Resolved]
  - Pancreatic enzymes decreased [Not Recovered/Not Resolved]
  - Calcium deficiency [Not Recovered/Not Resolved]
  - Subcutaneous abscess [Recovered/Resolved]
  - Hypoalbuminaemia [Recovered/Resolved]
  - Inner ear inflammation [Recovered/Resolved]
  - Lower urinary tract symptoms [Not Recovered/Not Resolved]
  - Rash [Recovered/Resolved]
